FAERS Safety Report 7001099-9 (Version None)
Quarter: 2010Q3

REPORT INFORMATION
  Report Type: 
  Country: None (occurrence: None)
  Receive Date: 20100920
  Receipt Date: 20100915
  Transmission Date: 20110219
  Serious: Yes (Other)
  Sender: FDA-Public Use
  Company Number: FR-BAYER-201039360GPV

PATIENT
  Age: 72 Year
  Sex: Male

DRUGS (1)
  1. KOGENATE [Suspect]
     Dates: end: 20100728

REACTIONS (3)
  - FACTOR VIII INHIBITION [None]
  - HAEMATOMA [None]
  - HAEMOPHILIA [None]
